FAERS Safety Report 16395348 (Version 1)
Quarter: 2019Q2

REPORT INFORMATION
  Report Type: Spontaneous
  Country: FR (occurrence: FR)
  Receive Date: 20190605
  Receipt Date: 20190605
  Transmission Date: 20190711
  Serious: Yes (Death, Other)
  Sender: FDA-Public Use
  Company Number: FR-BAYER-2019-104171

PATIENT
  Age: 80 Year
  Sex: Male

DRUGS (4)
  1. NEXAVAR [Suspect]
     Active Substance: SORAFENIB
     Indication: HEPATOCELLULAR CARCINOMA
     Dosage: 200 MG, BID
     Dates: start: 201803, end: 201903
  2. NEXAVAR [Suspect]
     Active Substance: SORAFENIB
     Indication: HEPATOCELLULAR CARCINOMA
     Dosage: 600 MG, QD
     Dates: start: 201805
  3. NEXAVAR [Suspect]
     Active Substance: SORAFENIB
     Indication: HEPATOCELLULAR CARCINOMA
     Dosage: 800 MG, QD
     Dates: start: 201808
  4. NEXAVAR [Suspect]
     Active Substance: SORAFENIB
     Indication: HEPATOCELLULAR CARCINOMA
     Dosage: 600 MG, QD
     Dates: start: 201809, end: 201903

REACTIONS (8)
  - Death [Fatal]
  - Asthenia [None]
  - Hepatocellular carcinoma [None]
  - Hepatocellular carcinoma [None]
  - Diarrhoea [None]
  - Dysgeusia [None]
  - Off label use [None]
  - Epistaxis [None]

NARRATIVE: CASE EVENT DATE: 201803
